FAERS Safety Report 6614399-9 (Version None)
Quarter: 2010Q1

REPORT INFORMATION
  Report Type: 
  Country: None (occurrence: None)
  Receive Date: 20100304
  Receipt Date: 20100224
  Transmission Date: 20100710
  Serious: Yes (Hospitalization)
  Sender: FDA-Public Use
  Company Number: PHHO2010KR00912

PATIENT
  Sex: Female
  Weight: 46.7 kg

DRUGS (6)
  1. AFINITOR [Suspect]
     Indication: PHAEOCHROMOCYTOMA
     Dosage: 10 MG, QD
     Route: 048
     Dates: start: 20091109, end: 20091215
  2. AFINITOR [Suspect]
     Dosage: 5 MG, QD
     Route: 048
     Dates: start: 20091221, end: 20100106
  3. PREDNISOLONE [Concomitant]
  4. ZOLPIDEM [Concomitant]
     Indication: INSOMNIA
  5. OXYCODONE HCL [Concomitant]
     Indication: PAIN
  6. LEVOTHYROXINE SODIUM [Concomitant]
     Indication: HYPOTHYROIDISM

REACTIONS (6)
  - CHILLS [None]
  - COUGH [None]
  - LUNG CONSOLIDATION [None]
  - MOUTH ULCERATION [None]
  - MYALGIA [None]
  - PYREXIA [None]
